FAERS Safety Report 5890483-2 (Version None)
Quarter: 2008Q3

REPORT INFORMATION
  Report Type: 
  Country: None (occurrence: None)
  Receive Date: 20080922
  Receipt Date: 20080911
  Transmission Date: 20090109
  Serious: Yes (Hospitalization, Disabling, Other)
  Sender: FDA-Public Use
  Company Number: GR-JNJFOC-20080903125

PATIENT
  Sex: Female
  Weight: 80 kg

DRUGS (5)
  1. REMICADE [Suspect]
     Dosage: 8 VIALS EVERY 8 WEEKS
     Route: 042
  2. REMICADE [Suspect]
     Indication: PSORIASIS
     Dosage: 8 VIALS EVERY 8 WEEKS
     Route: 042
  3. REMICADE [Suspect]
     Indication: CROHN'S DISEASE
     Dosage: 4 VIALS EVERY 8 WEEKS
     Route: 042
  4. SALOFALK [Concomitant]
     Dosage: 2 TABLETS THREE TIMES A DAY
  5. BUDENOFALK [Concomitant]

REACTIONS (1)
  - BREAST CANCER [None]
